FAERS Safety Report 20327721 (Version 1)
Quarter: 2022Q1

REPORT INFORMATION
  Report Type: Spontaneous
  Country: US (occurrence: US)
  Receive Date: 20220112
  Receipt Date: 20220112
  Transmission Date: 20220423
  Serious: No
  Sender: FDA-Public Use
  Company Number: US-GW PHARMA-202111USGW06513

PATIENT

DRUGS (8)
  1. EPIDIOLEX [Suspect]
     Active Substance: CANNABIDIOL
     Indication: Lennox-Gastaut syndrome
     Dosage: 50 MILLIGRAM, BID
     Route: 048
  2. EPIDIOLEX [Suspect]
     Active Substance: CANNABIDIOL
     Indication: Status epilepticus
     Dosage: 100 MILLIGRAM, BID
     Route: 048
  3. EPIDIOLEX [Suspect]
     Active Substance: CANNABIDIOL
     Dosage: 150 MILLIGRAM, BID
     Route: 048
  4. EPIDIOLEX [Suspect]
     Active Substance: CANNABIDIOL
     Dosage: 200 MILLIGRAM, BID
     Route: 048
  5. ONFI [Concomitant]
     Active Substance: CLOBAZAM
     Indication: Product used for unknown indication
     Dosage: UNK, WEANED OFF
     Route: 065
  6. DIVALPROEX SODIUM [Concomitant]
     Active Substance: DIVALPROEX SODIUM
     Indication: Product used for unknown indication
     Dosage: UNK
     Route: 065
  7. VITAMINS NOS [Concomitant]
     Active Substance: VITAMINS
     Indication: Product used for unknown indication
     Dosage: UNK
     Route: 065
  8. PROBIOTICS NOS [Concomitant]
     Active Substance: PROBIOTICS NOS
     Indication: Product used for unknown indication
     Dosage: UNK
     Route: 065

REACTIONS (3)
  - Mood altered [Unknown]
  - Irritability [Unknown]
  - Somnolence [Unknown]
